FAERS Safety Report 11964687 (Version 1)
Quarter: 2016Q1

REPORT INFORMATION
  Report Type: Spontaneous
  Country: US (occurrence: None)
  Receive Date: 20160122
  Receipt Date: 20160122
  Transmission Date: 20160526
  Serious: Yes (Life-Threatening, Hospitalization, Disabling)
  Sender: FDA-Public Use
  Company Number: None

PATIENT
  Age: 42 Year
  Sex: Male
  Weight: 88 kg

DRUGS (7)
  1. LAMOTRIGINE. [Concomitant]
     Active Substance: LAMOTRIGINE
  2. BUSPIRONE 5MG BRISTOL MYERS SQUIBB [Suspect]
     Active Substance: BUSPIRONE HYDROCHLORIDE
     Indication: ANXIETY DISORDER
     Route: 048
     Dates: start: 20150405, end: 20150512
  3. DEPAKOTE [Concomitant]
     Active Substance: DIVALPROEX SODIUM
  4. BUSPIRONE 5MG BRISTOL MYERS SQUIBB [Suspect]
     Active Substance: BUSPIRONE HYDROCHLORIDE
     Indication: PANIC ATTACK
     Route: 048
     Dates: start: 20150405, end: 20150512
  5. SERTRALINE [Concomitant]
     Active Substance: SERTRALINE HYDROCHLORIDE
  6. ENSURE SUPPLEMENT [Concomitant]
  7. CLONAZEPAM. [Concomitant]
     Active Substance: CLONAZEPAM

REACTIONS (22)
  - Mania [None]
  - Tremor [None]
  - Suicidal ideation [None]
  - Drug hypersensitivity [None]
  - Insomnia [None]
  - Delusion [None]
  - Dyspnoea [None]
  - Decreased appetite [None]
  - Impaired driving ability [None]
  - Gait disturbance [None]
  - Fear [None]
  - Speech disorder [None]
  - Dehydration [None]
  - Blindness [None]
  - Confusional state [None]
  - Thirst [None]
  - Weight decreased [None]
  - Hyperhidrosis [None]
  - Nightmare [None]
  - Anal incontinence [None]
  - Hyponatraemia [None]
  - Diarrhoea [None]

NARRATIVE: CASE EVENT DATE: 20150512
